FAERS Safety Report 12392577 (Version 1)
Quarter: 2016Q2

REPORT INFORMATION
  Report Type: Report from Study
  Country: EC (occurrence: EC)
  Receive Date: 20160523
  Receipt Date: 20160523
  Transmission Date: 20160815
  Serious: Yes (Death)
  Sender: FDA-Public Use
  Company Number: EC-ROCHE-1696494

PATIENT
  Age: 71 Year
  Sex: Male

DRUGS (1)
  1. MABTHERA [Suspect]
     Active Substance: RITUXIMAB
     Indication: NON-HODGKIN^S LYMPHOMA
     Route: 042
     Dates: start: 2014, end: 201511

REACTIONS (3)
  - Respiratory arrest [Fatal]
  - Apnoea [Fatal]
  - Dyspnoea [Fatal]

NARRATIVE: CASE EVENT DATE: 201511
